FAERS Safety Report 6361744-8 (Version None)
Quarter: 2009Q3

REPORT INFORMATION
  Report Type: 
  Country: None (occurrence: None)
  Receive Date: 20090918
  Receipt Date: 20090916
  Transmission Date: 20100115
  Serious: Yes (Other)
  Sender: FDA-Public Use
  Company Number: RO-BRISTOL-MYERS SQUIBB COMPANY-14782445

PATIENT
  Age: 36 Year
  Sex: Female

DRUGS (2)
  1. BARACLUDE [Suspect]
     Indication: HEPATITIS B
     Route: 048
     Dates: start: 20081201
  2. VENTOLIN DS [Suspect]
     Indication: ASTHMA

REACTIONS (1)
  - GLAUCOMA [None]
